FAERS Safety Report 5077543-3 (Version None)
Quarter: 2006Q3

REPORT INFORMATION
  Report Type: 
  Country: None (occurrence: None)
  Receive Date: 20060810
  Receipt Date: 20060330
  Transmission Date: 20061208
  Serious: No
  Sender: FDA-Public Use
  Company Number: US-GLAXOSMITHKLINE-A0599753A

PATIENT
  Age: 55 Year
  Sex: Female

DRUGS (2)
  1. PAXIL CR [Suspect]
     Indication: ANXIETY
     Dosage: 12.5MG PER DAY
     Route: 048
     Dates: start: 20060329, end: 20060329
  2. PREMARIN [Concomitant]

REACTIONS (2)
  - DIARRHOEA [None]
  - STOMACH DISCOMFORT [None]
